FAERS Safety Report 24564469 (Version 1)
Quarter: 2024Q4

REPORT INFORMATION
  Report Type: Spontaneous
  Country: US (occurrence: US)
  Receive Date: 20241030
  Receipt Date: 20241030
  Transmission Date: 20250114
  Serious: No
  Sender: TEVA
  Company Number: US-TEVA-VS-3253559

PATIENT
  Age: 70 Year
  Sex: Female

DRUGS (2)
  1. ARFORMOTEROL TARTRATE [Suspect]
     Active Substance: ARFORMOTEROL TARTRATE
     Indication: Product used for unknown indication
     Dosage: 15-2 MCG/ML
     Route: 065
     Dates: start: 202410
  2. BROVANA [Concomitant]
     Active Substance: ARFORMOTEROL TARTRATE

REACTIONS (2)
  - Illness [Unknown]
  - Respiration abnormal [Unknown]

NARRATIVE: CASE EVENT DATE: 20241001
